FAERS Safety Report 12586689 (Version 2)
Quarter: 2016Q3

REPORT INFORMATION
  Report Type: Spontaneous
  Country: US (occurrence: US)
  Receive Date: 20160725
  Receipt Date: 20160825
  Transmission Date: 20161109
  Serious: No
  Sender: FDA-Public Use
  Company Number: US-PFIZER INC-2016344702

PATIENT
  Age: 60 Year
  Sex: Female
  Weight: 111.13 kg

DRUGS (13)
  1. SYNTHROID [Concomitant]
     Active Substance: LEVOTHYROXINE SODIUM
     Indication: HYPOTHYROIDISM
     Dosage: 75 UG, 1X/DAY
  2. LORATADINE. [Concomitant]
     Active Substance: LORATADINE
     Indication: HYPERSENSITIVITY
     Dosage: 10 MG, 1X/DAY
  3. CALCIUM AND VITAMIN D3 [Concomitant]
     Active Substance: CALCIUM\CHOLECALCIFEROL
     Indication: BONE DISORDER
     Dosage: 2 DF, DAILY (TAKES TWO A DAY)
     Dates: start: 2010
  4. ATENOLOL. [Concomitant]
     Active Substance: ATENOLOL
     Indication: HEART RATE ABNORMAL
     Dosage: 50MG. TAKES A 1/4 TABLET IN MORNING AND HALF TABLET AT BEDTIME
  5. VITAMIN A [Concomitant]
     Active Substance: VITAMIN A
     Indication: EYE DISORDER
  6. VITAMIN A [Concomitant]
     Active Substance: VITAMIN A
     Indication: ACNE
  7. OMEGA 3 [Concomitant]
     Active Substance: OMEGA-3 FATTY ACIDS
     Indication: BLOOD CHOLESTEROL ABNORMAL
     Dosage: 100 MG, 2X/DAY
  8. ATENOLOL. [Concomitant]
     Active Substance: ATENOLOL
     Indication: BLOOD PRESSURE ABNORMAL
  9. CHLORAZEPATE [Concomitant]
     Active Substance: CLORAZEPATE DIPOTASSIUM
     Indication: ANXIETY
     Dosage: 3.75 MG, 2X/DAY
  10. PRISTIQ EXTENDED-RELEASE [Suspect]
     Active Substance: DESVENLAFAXINE SUCCINATE
     Indication: DEPRESSION
     Dosage: 50 MG TABLET, 1X/DAY
     Route: 048
     Dates: start: 20160625
  11. VITAMIN A [Concomitant]
     Active Substance: VITAMIN A
     Indication: IMMUNE SYSTEM DISORDER
     Dosage: 8000 IU, 1X/DAY
  12. SIMVASTATIN. [Concomitant]
     Active Substance: SIMVASTATIN
     Indication: BLOOD CHOLESTEROL ABNORMAL
     Dosage: 20 MG, 1X/DAY
  13. CINNAMON. [Concomitant]
     Active Substance: CINNAMON
     Indication: BLOOD GLUCOSE ABNORMAL
     Dosage: 500 MG, 2X/DAY

REACTIONS (2)
  - Vomiting [Not Recovered/Not Resolved]
  - Foreign body [Recovered/Resolved]

NARRATIVE: CASE EVENT DATE: 20160627
